FAERS Safety Report 14692119 (Version 1)
Quarter: 2018Q1

REPORT INFORMATION
  Report Type: Spontaneous
  Country: US (occurrence: US)
  Receive Date: 20180329
  Receipt Date: 20180329
  Transmission Date: 20180509
  Serious: Yes (Disabling)
  Sender: FDA-Public Use
  Company Number: US-MALLINCKRODT-T201801210

PATIENT
  Sex: Female
  Weight: 68 kg

DRUGS (4)
  1. FENTANYL TRANSDERMAL SYSTEM [Suspect]
     Active Substance: FENTANYL
     Indication: MYALGIA
  2. FENTANYL TRANSDERMAL SYSTEM [Suspect]
     Active Substance: FENTANYL
     Indication: NEURALGIA
  3. HYDROCODONE/ACETAMINOPHEN [Suspect]
     Active Substance: ACETAMINOPHEN\HYDROCODONE
     Indication: PAIN
     Dosage: 10 MG
     Route: 065
  4. FENTANYL TRANSDERMAL SYSTEM [Suspect]
     Active Substance: FENTANYL
     Indication: SPINAL PAIN
     Dosage: 50 MCG, EVERY 72 HOURS
     Route: 062

REACTIONS (21)
  - Anxiety [Unknown]
  - Withdrawal syndrome [Unknown]
  - Feeling abnormal [Unknown]
  - Erythema [Unknown]
  - Rhinorrhoea [Unknown]
  - Irritability [Unknown]
  - Disability [Unknown]
  - Feeling cold [Unknown]
  - Hyperhidrosis [Unknown]
  - Insomnia [Unknown]
  - Application site pruritus [Unknown]
  - Drug ineffective [Unknown]
  - Dry skin [Unknown]
  - Drug effect incomplete [Unknown]
  - Morbid thoughts [Unknown]
  - Headache [Unknown]
  - Asthenia [Unknown]
  - Gait inability [Unknown]
  - Pain [Unknown]
  - Malaise [Unknown]
  - Product quality issue [Unknown]
